FAERS Safety Report 23876267 (Version 3)
Quarter: 2025Q1

REPORT INFORMATION
  Report Type: Report from Study
  Country: US (occurrence: US)
  Receive Date: 20240520
  Receipt Date: 20250305
  Transmission Date: 20250408
  Serious: No
  Sender: TAKEDA
  Company Number: US-TAKEDA-2023TUS084580

PATIENT
  Age: 55 Year
  Sex: Female
  Weight: 67.12 kg

DRUGS (18)
  1. HUMAN IMMUNOGLOBULIN G [Suspect]
     Active Substance: HUMAN IMMUNOGLOBULIN G
     Indication: Immunodeficiency common variable
  2. HUMAN IMMUNOGLOBULIN G [Suspect]
     Active Substance: HUMAN IMMUNOGLOBULIN G
  3. DIPHENHYDRAMINE HYDROCHLORIDE [Concomitant]
     Active Substance: DIPHENHYDRAMINE HYDROCHLORIDE
  4. TYLENOL [Concomitant]
     Active Substance: ACETAMINOPHEN
  5. SODIUM CHLORIDE [Concomitant]
     Active Substance: SODIUM CHLORIDE
  6. EPINEPHRINE [Concomitant]
     Active Substance: EPINEPHRINE
  7. FLUTICASONE PROPIONATE [Concomitant]
     Active Substance: FLUTICASONE PROPIONATE
  8. CRANBERRY [Concomitant]
     Active Substance: CRANBERRY
  9. ZYRTEC [Concomitant]
     Active Substance: CETIRIZINE HYDROCHLORIDE
  10. PREVACID [Concomitant]
     Active Substance: LANSOPRAZOLE
  11. ACETAMINOPHEN [Concomitant]
     Active Substance: ACETAMINOPHEN
  12. VITAMIN C [Concomitant]
     Active Substance: ASCORBIC ACID
  13. ESTRADIOL [Concomitant]
     Active Substance: ESTRADIOL
  14. PROGESTERONE [Concomitant]
     Active Substance: PROGESTERONE
  15. MAGNESIUM [Concomitant]
     Active Substance: MAGNESIUM
  16. LIDOCAINE [Concomitant]
     Active Substance: LIDOCAINE
  17. VITAMIN D3 [Concomitant]
     Active Substance: CHOLECALCIFEROL
  18. BANOPHEN [Concomitant]
     Active Substance: DIPHENHYDRAMINE HYDROCHLORIDE

REACTIONS (3)
  - Hand fracture [Unknown]
  - Herpes zoster [Unknown]
  - Influenza [Unknown]

NARRATIVE: CASE EVENT DATE: 20241011
